FAERS Safety Report 6274039-8 (Version None)
Quarter: 2009Q3

REPORT INFORMATION
  Report Type: 
  Country: None (occurrence: None)
  Receive Date: 20090716
  Receipt Date: 20090630
  Transmission Date: 20100115
  Serious: Yes (Hospitalization)
  Sender: FDA-Public Use
  Company Number: 2009BI020780

PATIENT
  Age: 69 Year
  Sex: Male

DRUGS (8)
  1. ZEVALIN [Suspect]
     Indication: NON-HODGKIN'S LYMPHOMA
  2. RITUXIMAB [Concomitant]
  3. LOMUSTINE [Concomitant]
  4. ETOPOSIDE [Concomitant]
  5. CHOLRAMBUCIL [Concomitant]
  6. PREDNISONE [Concomitant]
  7. BENZBRAMERON [Concomitant]
  8. METOPROLOL TARTRATE [Concomitant]

REACTIONS (2)
  - ATRIAL FIBRILLATION [None]
  - CEREBROVASCULAR ACCIDENT [None]
